FAERS Safety Report 24702327 (Version 1)
Quarter: 2024Q4

REPORT INFORMATION
  Report Type: Report from Study
  Country: IN (occurrence: IN)
  Receive Date: 20241205
  Receipt Date: 20241205
  Transmission Date: 20250115
  Serious: Yes (Other)
  Sender: NOVARTIS
  Company Number: IN-002147023-NVSC2024IN188081

PATIENT
  Sex: Male

DRUGS (2)
  1. MYFORTIC [Suspect]
     Active Substance: MYCOPHENOLATE SODIUM
     Indication: Renal transplant
     Dosage: 360 MG, BID
     Route: 048
  2. TACROLIMUS [Suspect]
     Active Substance: TACROLIMUS
     Indication: Renal transplant
     Dosage: 2.0 MG, BID (2.5 MG)
     Route: 048

REACTIONS (12)
  - Tuberculosis [Unknown]
  - Bone tuberculosis [Unknown]
  - Type 2 diabetes mellitus [Unknown]
  - Chest discomfort [Unknown]
  - Electrolyte imbalance [Unknown]
  - Hypoalbuminaemia [Unknown]
  - Pain [Unknown]
  - Off label use [Unknown]
  - Arthralgia [Unknown]
  - Joint swelling [Unknown]
  - Hypertension [Unknown]
  - Back pain [Unknown]
